FAERS Safety Report 19996408 (Version 1)
Quarter: 2021Q4

REPORT INFORMATION
  Report Type: Spontaneous
  Country: US (occurrence: US)
  Receive Date: 20211026
  Receipt Date: 20211026
  Transmission Date: 20220303
  Serious: Yes (Hospitalization)
  Sender: FDA-Public Use
  Company Number: None

PATIENT
  Sex: Female

DRUGS (2)
  1. HUMIRA [Suspect]
     Active Substance: ADALIMUMAB
     Indication: Colitis ulcerative
     Dosage: OTHER FREQUENCY:Q14DAYS;
     Route: 058
     Dates: start: 20210823
  2. HUMIRA [Suspect]
     Active Substance: ADALIMUMAB
     Indication: Colitis

REACTIONS (3)
  - Product distribution issue [None]
  - Product storage error [None]
  - Manufacturing product shipping issue [None]
